FAERS Safety Report 5120469-7 (Version None)
Quarter: 2006Q4

REPORT INFORMATION
  Report Type: 
  Country: None (occurrence: None)
  Receive Date: 20061002
  Receipt Date: 20060920
  Transmission Date: 20070319
  Serious: Yes (Hospitalization, Disabling)
  Sender: FDA-Public Use
  Company Number: MEDI-0004948

PATIENT
  Age: 30 Day
  Sex: Male

DRUGS (4)
  1. SYNAGIS [Suspect]
     Indication: ANTIVIRAL PROPHYLAXIS
     Dosage: SEE IMAGE, INTRAMUSCULAR
     Route: 030
     Dates: start: 20051220, end: 20051220
  2. SYNAGIS [Suspect]
     Indication: ANTIVIRAL PROPHYLAXIS
     Dosage: SEE IMAGE, INTRAMUSCULAR
     Route: 030
     Dates: start: 20060329, end: 20060329
  3. SYNAGIS [Suspect]
     Indication: ANTIVIRAL PROPHYLAXIS
     Dosage: SEE IMAGE, INTRAMUSCULAR
     Route: 030
     Dates: start: 20060123
  4. SYNAGIS [Suspect]
     Indication: ANTIVIRAL PROPHYLAXIS
     Dosage: SEE IMAGE, INTRAMUSCULAR
     Route: 030
     Dates: start: 20060222

REACTIONS (3)
  - APNOEIC ATTACK [None]
  - CONVULSION [None]
  - ENCEPHALOPATHY [None]
